FAERS Safety Report 12146390 (Version 1)
Quarter: 2016Q1

REPORT INFORMATION
  Report Type: Spontaneous
  Country: CN (occurrence: CN)
  Receive Date: 20160304
  Receipt Date: 20160304
  Transmission Date: 20160526
  Serious: Yes (Other)
  Sender: FDA-Public Use
  Company Number: CN-SEBELA IRELAND LIMITED-2016SEB00056

PATIENT
  Age: 46 Year
  Sex: Male

DRUGS (1)
  1. ALLOPURINOL. [Suspect]
     Active Substance: ALLOPURINOL
     Indication: HYPERURICAEMIA
     Dosage: 100 MG, 2X/DAY
     Route: 065

REACTIONS (4)
  - Hepatic steatosis [Unknown]
  - Liver disorder [Unknown]
  - Stevens-Johnson syndrome [Unknown]
  - Hepatitis viral [Unknown]
